FAERS Safety Report 7703145-3 (Version None)
Quarter: 2011Q3

REPORT INFORMATION
  Report Type: 
  Country: None (occurrence: None)
  Receive Date: 20110823
  Receipt Date: 20110817
  Transmission Date: 20111222
  Serious: Yes (Death)
  Sender: FDA-Public Use
  Company Number: US-US-EMD SERONO, INC.-7077481

PATIENT
  Sex: Male
  Weight: 86 kg

DRUGS (1)
  1. REBIF [Suspect]
     Indication: MULTIPLE SCLEROSIS
     Dates: start: 20050301, end: 20101101

REACTIONS (3)
  - METASTASES TO LIVER [None]
  - OESOPHAGEAL CARCINOMA [None]
  - METASTASES TO LUNG [None]
